FAERS Safety Report 7860483-1 (Version None)
Quarter: 2011Q4

REPORT INFORMATION
  Report Type: 
  Country: None (occurrence: None)
  Receive Date: 20111027
  Receipt Date: 20111019
  Transmission Date: 20120403
  Serious: Yes (Hospitalization, Other)
  Sender: FDA-Public Use
  Company Number: US-BAYER-201012542NA

PATIENT
  Age: 42 Year
  Sex: Female
  Weight: 59.864 kg

DRUGS (15)
  1. PROZAC [Concomitant]
  2. XANAX [Concomitant]
     Indication: ANXIETY
     Dosage: 0.25 MG, BID
  3. DIFLUCAN [Concomitant]
     Indication: URINARY TRACT INFECTION
  4. BUTALBITAL ACETAMINOPHEN AND CAFFEINE [Concomitant]
  5. YASMIN [Suspect]
     Indication: PREMENSTRUAL SYNDROME
     Dosage: 1 DF (DAILY DOSE), QD, ORAL
     Route: 048
     Dates: start: 20011201, end: 20030201
  6. ACETAMINOPHEN AND HYDROCODONE BITARTRATE [Concomitant]
  7. METHIMAZOLE [Concomitant]
  8. LEVAQUIN [Concomitant]
     Indication: URINARY TRACT INFECTION
  9. AGGRENOX [Concomitant]
     Indication: CEREBROVASCULAR ACCIDENT
  10. AMBIEN CR [Concomitant]
  11. PROPRANOLOL [Concomitant]
  12. FLAGYL [Concomitant]
  13. YAZ [Suspect]
     Indication: PREMENSTRUAL SYNDROME
     Dosage: 1 DF (DAILY DOSE), QD, ORAL
     Route: 048
     Dates: start: 20071001, end: 20090501
  14. BUTALBITAL [Concomitant]
     Indication: HEADACHE
     Dosage: UNK
     Dates: start: 20090502, end: 20090502
  15. ASPIRIN [Concomitant]
     Dosage: 325 MG, QD

REACTIONS (3)
  - DEEP VEIN THROMBOSIS [None]
  - EMOTIONAL DISTRESS [None]
  - CEREBROVASCULAR ACCIDENT [None]
